FAERS Safety Report 6782155-7 (Version None)
Quarter: 2010Q2

REPORT INFORMATION
  Report Type: 
  Country: None (occurrence: None)
  Receive Date: 20100621
  Receipt Date: 20100323
  Transmission Date: 20101027
  Serious: Yes (Other)
  Sender: FDA-Public Use
  Company Number: PHHY2010BE17278

PATIENT
  Sex: Male

DRUGS (3)
  1. SANDOSTATIN [Suspect]
     Indication: COLON CANCER
     Dosage: 0.3 MG ONE INJECTION
     Route: 058
  2. MORPHINE [Concomitant]
  3. ACETAMINOPHEN [Concomitant]

REACTIONS (2)
  - ERYTHEMA [None]
  - URTICARIA [None]
